FAERS Safety Report 5626725-8 (Version None)
Quarter: 2008Q1

REPORT INFORMATION
  Report Type: 
  Country: None (occurrence: None)
  Receive Date: 20080214
  Receipt Date: 20080207
  Transmission Date: 20080703
  Serious: Yes (Other)
  Sender: FDA-Public Use
  Company Number: JP-PFIZER INC-2008010607

PATIENT
  Age: 74 Year
  Sex: Female

DRUGS (3)
  1. XALATAN [Suspect]
     Indication: GLAUCOMA
     Dosage: TEXT:1 DROP QD  TDD:1 DROP
     Dates: start: 20080125, end: 20080127
  2. KARY UNI [Concomitant]
  3. BETA BLOCKING AGENTS [Concomitant]

REACTIONS (3)
  - EYE PAIN [None]
  - IRITIS [None]
  - KERATITIS [None]
